FAERS Safety Report 8952568 (Version 1)
Quarter: 2012Q4

REPORT INFORMATION
  Report Type: Report from Study
  Country: GB (occurrence: US)
  Receive Date: 20121205
  Receipt Date: 20121205
  Transmission Date: 20130627
  Serious: Yes (Hospitalization)
  Sender: FDA-Public Use
  Company Number: US-BRISTOL-MYERS SQUIBB COMPANY-17158239

PATIENT
  Sex: Male
  Weight: 76 kg

DRUGS (3)
  1. CETUXIMAB [Suspect]
     Indication: HEAD AND NECK CANCER
     Dosage: 11-Jan-2010 and last dose on 02Feb2010
     Route: 065
     Dates: start: 20091230
  2. CISPLATIN [Suspect]
     Indication: HEAD AND NECK CANCER
     Dosage: 11-Jan-2010, Last dose on 02Feb2010 red to dose level 1
     Route: 065
     Dates: start: 20091230
  3. BEVACIZUMAB [Suspect]
     Indication: HEAD AND NECK CANCER
     Dosage: lAST DOSE ON 4FEB2012
     Route: 065
     Dates: start: 20091230, end: 20100211

REACTIONS (10)
  - Dehydration [Recovered/Resolved]
  - Amylase increased [Not Recovered/Not Resolved]
  - Constipation [Recovered/Resolved]
  - Hypokalaemia [Recovered/Resolved]
  - Hyponatraemia [Recovered/Resolved]
  - Abdominal pain [Recovered/Resolved]
  - Oropharyngeal pain [Recovered/Resolved]
  - Fatigue [Not Recovered/Not Resolved]
  - Weight decreased [Recovered/Resolved]
  - Lymphopenia [Recovered/Resolved]
